FAERS Safety Report 6745563-6 (Version None)
Quarter: 2010Q2

REPORT INFORMATION
  Report Type: 
  Country: None (occurrence: None)
  Receive Date: 20100528
  Receipt Date: 20100517
  Transmission Date: 20101027
  Serious: Yes (Hospitalization, Other)
  Sender: FDA-Public Use
  Company Number: US-JNJFOC-20100307169

PATIENT
  Sex: Male
  Weight: 74.84 kg

DRUGS (12)
  1. REMICADE [Suspect]
     Indication: CROHN'S DISEASE
     Dosage: ABOUT 11 INFUSIONS
     Route: 042
  2. REMICADE [Suspect]
     Dosage: 12 INFUSION
     Route: 042
  3. HUMIRA [Suspect]
     Indication: CROHN'S DISEASE
     Dosage: YEARS AGO 3 INJECTIONS
     Route: 050
  4. HUMIRA [Suspect]
     Route: 050
  5. HUMIRA [Suspect]
     Route: 050
  6. PREDNISONE TAB [Concomitant]
  7. TPN ELECTROLYTES IN PLASTIC CONTAINER [Concomitant]
     Indication: MEDICAL DIET
     Dosage: INFUSION; NIGHTLY VIA POWER PORT
  8. LANSOPRAZOLE [Concomitant]
  9. OXYCODONE HYDROCHLORIDE [Concomitant]
     Indication: CROHN'S DISEASE
  10. RISEDRONATE SODIUM [Concomitant]
  11. MIRTAZAPINE [Concomitant]
     Indication: DEPRESSION
  12. CLONAZEPAM [Concomitant]

REACTIONS (10)
  - ARTHRALGIA [None]
  - CROHN'S DISEASE [None]
  - DEVICE RELATED INFECTION [None]
  - DYSPNOEA [None]
  - HAEMATOCRIT DECREASED [None]
  - INFUSION RELATED REACTION [None]
  - PRURITUS [None]
  - PYREXIA [None]
  - STREPTOCOCCAL SEPSIS [None]
  - URTICARIA [None]
